FAERS Safety Report 10747536 (Version 2)
Quarter: 2015Q1

REPORT INFORMATION
  Report Type: Report from Study
  Country: US (occurrence: US)
  Receive Date: 20150129
  Receipt Date: 20150228
  Transmission Date: 20150721
  Serious: Yes (Other)
  Sender: FDA-Public Use
  Company Number: US-BIOGENIDEC-2015BI011087

PATIENT
  Age: 59 Year
  Sex: Female

DRUGS (19)
  1. GABAPENTIN. [Concomitant]
     Active Substance: GABAPENTIN
     Dates: start: 20141222
  2. METFORMIN [Concomitant]
     Active Substance: METFORMIN HYDROCHLORIDE
     Dates: start: 20150102
  3. PENNSAID [Concomitant]
     Active Substance: DICLOFENAC SODIUM
     Route: 061
     Dates: start: 20140203
  4. SYNTHROID [Concomitant]
     Active Substance: LEVOTHYROXINE SODIUM
     Dates: start: 20150102
  5. VITAMIN D2 [Concomitant]
     Active Substance: ERGOCALCIFEROL
     Route: 048
     Dates: start: 20150108
  6. NEURONTIN [Concomitant]
     Active Substance: GABAPENTIN
  7. FISH OIL [Concomitant]
     Active Substance: FISH OIL
     Dates: start: 20141023
  8. DULOXETIN [Concomitant]
     Active Substance: DULOXETINE
     Dates: start: 20150107
  9. FISH OIL [Concomitant]
     Active Substance: FISH OIL
     Dates: start: 20141023
  10. PROAIR HFA [Concomitant]
     Active Substance: ALBUTEROL SULFATE
     Dates: start: 20141215
  11. TRAMADOL [Concomitant]
     Active Substance: TRAMADOL
     Route: 048
     Dates: start: 20150102
  12. CYMBALTA [Concomitant]
     Active Substance: DULOXETINE HYDROCHLORIDE
  13. MINOCYCLINE [Concomitant]
     Active Substance: MINOCYCLINE\MINOCYCLINE HYDROCHLORIDE
  14. TOVIAZ [Concomitant]
     Active Substance: FESOTERODINE FUMARATE
     Dates: start: 20150102
  15. TRIAMTERENE/HYDROCHLOROTHIAZIDE [Concomitant]
     Active Substance: HYDROCHLOROTHIAZIDE\TRIAMTERENE
     Dates: start: 20141222
  16. ASPIRIN. [Concomitant]
     Active Substance: ASPIRIN
     Route: 048
     Dates: start: 20141023
  17. TRAZODONE [Concomitant]
     Active Substance: TRAZODONE HYDROCHLORIDE
     Route: 048
     Dates: start: 20150108
  18. TECFIDERA [Suspect]
     Active Substance: DIMETHYL FUMARATE
     Indication: MULTIPLE SCLEROSIS
     Route: 048
     Dates: start: 20141023
  19. FISH OIL [Concomitant]
     Active Substance: FISH OIL
     Dates: start: 20141023

REACTIONS (3)
  - Palpitations [Unknown]
  - Ischaemic stroke [Unknown]
  - Flushing [Unknown]
